FAERS Safety Report 11176526 (Version 1)
Quarter: 2015Q2

REPORT INFORMATION
  Report Type: Spontaneous
  Country: CN (occurrence: CN)
  Receive Date: 20150610
  Receipt Date: 20150610
  Transmission Date: 20150821
  Serious: Yes (Life-Threatening)
  Sender: FDA-Public Use
  Company Number: CN-ASTRAZENECA-2015SE55774

PATIENT
  Age: 17167 Day
  Sex: Male
  Weight: 52 kg

DRUGS (11)
  1. OMEPRAZOLE. [Suspect]
     Active Substance: OMEPRAZOLE
     Indication: NAUSEA
     Route: 048
     Dates: start: 20140917, end: 20140919
  2. SODIUM CHLORIDE. [Suspect]
     Active Substance: SODIUM CHLORIDE
     Indication: INFECTION
     Dosage: 0.4G QD IV GTT
     Route: 041
     Dates: start: 20140918, end: 20140919
  3. LEVOFLOXACINE [Suspect]
     Active Substance: LEVOFLOXACIN
     Indication: INFECTION
     Dosage: 0.2 G, BID, (HYDROCHLORIDE)
     Route: 048
     Dates: start: 20140916, end: 20140918
  4. ISOPHANE PROTAMINE BIOSYNTHETIC HUMAN INSULIN [Concomitant]
     Indication: DIABETES MELLITUS
     Route: 058
     Dates: start: 20140911, end: 20140923
  5. METOPROLOL TARTRATE. [Concomitant]
     Active Substance: METOPROLOL TARTRATE
     Indication: RENAL HYPERTENSION
     Route: 048
     Dates: start: 20140911, end: 20141004
  6. BUMETANIDE. [Concomitant]
     Active Substance: BUMETANIDE
     Indication: DIABETIC NEPHROPATHY
     Route: 042
     Dates: start: 20140916, end: 20141004
  7. MEDICINAL CHARCOAL [Concomitant]
     Indication: DIALYSIS
     Route: 048
     Dates: start: 20140912, end: 20140919
  8. LEVOFLOXACINE [Suspect]
     Active Substance: LEVOFLOXACIN
     Indication: INFECTION
     Dosage: 0.4G QD IV GTT (LACTATE)
     Route: 041
     Dates: start: 20140918, end: 20140919
  9. SHENSHUAINING KELI [Concomitant]
     Indication: AZOTAEMIA
     Route: 048
     Dates: start: 20140912, end: 20140919
  10. BIOSYNTHETIC HUMAN INSULIN [Concomitant]
     Indication: DIABETES MELLITUS
     Route: 058
     Dates: start: 20140911, end: 20140923
  11. SAFFLOR YELLOW [Concomitant]
     Indication: CARDIOVASCULAR DISORDER
     Route: 041
     Dates: start: 20140916, end: 20140919

REACTIONS (1)
  - Suicide attempt [Recovered/Resolved]

NARRATIVE: CASE EVENT DATE: 20140919
